FAERS Safety Report 20765632 (Version 1)
Quarter: 2022Q2

REPORT INFORMATION
  Report Type: Spontaneous
  Country: CN (occurrence: CN)
  Receive Date: 20220428
  Receipt Date: 20220428
  Transmission Date: 20220721
  Serious: Yes (Other)
  Sender: FDA-Public Use
  Company Number: CN-PFIZER INC-202200604807

PATIENT
  Age: 37 Year
  Sex: Female
  Weight: 62 kg

DRUGS (1)
  1. HEMABATE [Suspect]
     Active Substance: CARBOPROST TROMETHAMINE
     Indication: Prophylaxis
     Dosage: 250 UG, 1X/DAY
     Route: 030
     Dates: start: 20220418, end: 20220418

REACTIONS (4)
  - Temperature intolerance [Recovering/Resolving]
  - Chills [Recovering/Resolving]
  - Chest discomfort [Recovering/Resolving]
  - Off label use [Unknown]

NARRATIVE: CASE EVENT DATE: 20220418
